FAERS Safety Report 24426062 (Version 2)
Quarter: 2024Q4

REPORT INFORMATION
  Report Type: Spontaneous
  Country: SA (occurrence: SA)
  Receive Date: 20241011
  Receipt Date: 20241024
  Transmission Date: 20250114
  Serious: Yes (Life-Threatening, Hospitalization, Other)
  Sender: ALKEM
  Company Number: None

PATIENT
  Age: 38 Year
  Sex: Male

DRUGS (3)
  1. MYCOPHENOLATE MOFETIL [Suspect]
     Active Substance: MYCOPHENOLATE MOFETIL
     Indication: Product used for unknown indication
     Dosage: UNK
     Route: 065
  2. TACROLIMUS [Suspect]
     Active Substance: TACROLIMUS
     Indication: Product used for unknown indication
     Dosage: UNK
     Route: 065
  3. APIXABAN [Concomitant]
     Active Substance: APIXABAN
     Indication: Peripheral vein thrombosis
     Dosage: 2.5 MILLIGRAM, BID
     Route: 065

REACTIONS (6)
  - Peripheral artery aneurysm rupture [Recovering/Resolving]
  - Peripheral artery aneurysm [Recovering/Resolving]
  - Arteriosclerosis [Recovering/Resolving]
  - Haemodynamic instability [Recovering/Resolving]
  - Transplant rejection [Recovering/Resolving]
  - Chronic allograft nephropathy [Recovering/Resolving]
